FAERS Safety Report 5280608-4 (Version None)
Quarter: 2007Q1

REPORT INFORMATION
  Report Type: 
  Country: None (occurrence: None)
  Receive Date: 20070329
  Receipt Date: 20070322
  Transmission Date: 20070707
  Serious: Yes (Other)
  Sender: FDA-Public Use
  Company Number: 2007UW05671

PATIENT
  Age: 46 Year
  Sex: Female
  Weight: 69.4 kg

DRUGS (5)
  1. SEROQUEL [Suspect]
     Indication: BIPOLAR DISORDER
     Route: 048
  2. SEROQUEL [Suspect]
     Route: 048
  3. VIVELLE [Concomitant]
     Route: 062
  4. SYNTHROID [Concomitant]
  5. ZYRTEC-D [Concomitant]

REACTIONS (9)
  - ANXIETY [None]
  - CRYING [None]
  - DISORIENTATION [None]
  - DIZZINESS [None]
  - EYE BURNS [None]
  - EYE DISORDER [None]
  - MOTOR DYSFUNCTION [None]
  - NASAL CONGESTION [None]
  - SUFFOCATION FEELING [None]
